FAERS Safety Report 8320824-8 (Version None)
Quarter: 2012Q2

REPORT INFORMATION
  Report Type: 
  Country: None (occurrence: None)
  Receive Date: 20120430
  Receipt Date: 20120419
  Transmission Date: 20120825
  Serious: Yes (Hospitalization, Other)
  Sender: FDA-Public Use
  Company Number: PHHY2011CA106286

PATIENT
  Sex: Male

DRUGS (1)
  1. SANDOSTATIN LAR [Suspect]
     Indication: PANCREATIC NEUROENDOCRINE TUMOUR
     Dosage: 30 MG, QMO
     Route: 030
     Dates: start: 20111129

REACTIONS (9)
  - HEPATIC PAIN [None]
  - FATIGUE [None]
  - DIARRHOEA [None]
  - FAECES DISCOLOURED [None]
  - FOOD POISONING [None]
  - ABDOMINAL PAIN [None]
  - VOMITING [None]
  - NIGHT SWEATS [None]
  - PYREXIA [None]
